FAERS Safety Report 11082356 (Version 5)
Quarter: 2015Q2

REPORT INFORMATION
  Report Type: Report from Study
  Country: DE (occurrence: DE)
  Receive Date: 20150501
  Receipt Date: 20150615
  Transmission Date: 20150821
  Serious: Yes (Hospitalization, Other)
  Sender: FDA-Public Use
  Company Number: DE-TAKEDA-2015TUS005544

PATIENT
  Age: 72 Year
  Sex: Male
  Weight: 64.2 kg

DRUGS (1)
  1. PEGINESATIDE [Suspect]
     Active Substance: PEGINESATIDE
     Indication: APLASIA PURE RED CELL
     Dosage: 0.45 ML, UNK
     Route: 048
     Dates: start: 20120620, end: 20150422

REACTIONS (2)
  - Atrial fibrillation [Recovered/Resolved]
  - Acute myocardial infarction [Recovered/Resolved]

NARRATIVE: CASE EVENT DATE: 20150420
